FAERS Safety Report 24334954 (Version 1)
Quarter: 2024Q3

REPORT INFORMATION
  Report Type: Spontaneous
  Country: DK (occurrence: DK)
  Receive Date: 20240918
  Receipt Date: 20240918
  Transmission Date: 20241017
  Serious: Yes (Other)
  Sender: MERCK
  Company Number: None

PATIENT
  Age: 60 Year
  Sex: Male
  Weight: 90 kg

DRUGS (3)
  1. KEYTRUDA [Suspect]
     Active Substance: PEMBROLIZUMAB
     Indication: Oesophageal cancer metastatic
     Dosage: STRENGTH: 25 MG/ML; DOSAGE: 174 MG EVERY 3RD WEEK (5 SERIES), 176 MG EVERY 3RD WEEK (2 SERIES), LAST
     Route: 042
     Dates: start: 20240228, end: 20240814
  2. OXALIPLATIN [Concomitant]
     Active Substance: OXALIPLATIN
     Indication: Oesophageal cancer metastatic
     Dosage: DOSAGE: 6 SERIES (UNKNOWN DOSAGE)
  3. CAPECITABINE [Concomitant]
     Active Substance: CAPECITABINE
     Indication: Oesophageal cancer metastatic
     Dosage: DOSAGE: 6 SERIES (UNKNOWN DOSAGE)

REACTIONS (2)
  - Myxoedema [Not Recovered/Not Resolved]
  - Neuropathy peripheral [Unknown]

NARRATIVE: CASE EVENT DATE: 20240101
